FAERS Safety Report 11935260 (Version 1)
Quarter: 2016Q1

REPORT INFORMATION
  Report Type: Report from Study
  Country: TR (occurrence: TR)
  Receive Date: 20160121
  Receipt Date: 20160121
  Transmission Date: 20160526
  Serious: Yes (Other)
  Sender: FDA-Public Use
  Company Number: TR-ASTELLAS-2016US002117

PATIENT
  Age: 19 Year
  Sex: Male

DRUGS (2)
  1. TACROLIMUS. [Suspect]
     Active Substance: TACROLIMUS
     Indication: LIVER TRANSPLANT
     Dosage: UNK UNK, UNKNOWN FREQ.
     Route: 065
  2. MYCOPHENOLATE MOFETIL. [Suspect]
     Active Substance: MYCOPHENOLATE MOFETIL
     Indication: LIVER TRANSPLANT
     Dosage: UNK UNK, UNKNOWN FREQ.
     Route: 065

REACTIONS (2)
  - Generalised tonic-clonic seizure [Unknown]
  - Toxicity to various agents [Unknown]
